FAERS Safety Report 10352945 (Version 1)
Quarter: 2014Q3

REPORT INFORMATION
  Report Type: Spontaneous
  Country: US (occurrence: US)
  Receive Date: 20140730
  Receipt Date: 20140730
  Transmission Date: 20150326
  Serious: No
  Sender: FDA-Public Use
  Company Number: US-ABBVIE-13P-163-1141288-00

PATIENT
  Age: 64 Year
  Sex: Female
  Weight: 147.55 kg

DRUGS (1)
  1. SYNTHROID [Suspect]
     Active Substance: LEVOTHYROXINE SODIUM
     Indication: HYPOTHYROIDISM
     Dates: start: 20130601, end: 20130721

REACTIONS (9)
  - Mobility decreased [Unknown]
  - Adverse reaction [Unknown]
  - Inappropriate schedule of drug administration [Unknown]
  - Muscle contractions involuntary [Unknown]
  - Myalgia [Recovered/Resolved]
  - Muscle twitching [Unknown]
  - Muscle spasms [Not Recovered/Not Resolved]
  - Muscle spasms [Unknown]
  - Meniscus injury [Unknown]

NARRATIVE: CASE EVENT DATE: 201306
